FAERS Safety Report 5144793-7 (Version None)
Quarter: 2006Q4

REPORT INFORMATION
  Report Type: 
  Country: None (occurrence: None)
  Receive Date: 20061103
  Receipt Date: 20061103
  Transmission Date: 20070319
  Serious: Yes (Other)
  Sender: FDA-Public Use
  Company Number: None

PATIENT
  Age: 49 Year
  Sex: Female
  Weight: 69.5 kg

DRUGS (12)
  1. TEMODAR [Suspect]
     Indication: GLIOBLASTOMA
     Dosage: 100MG PO QD
     Route: 048
     Dates: start: 20060906, end: 20061016
  2. TEMODAR [Suspect]
     Indication: GLIOBLASTOMA
     Dosage: 40 MG QD PO
     Route: 048
     Dates: start: 20060906, end: 20061016
  3. CRANIAL IRRADIATION [Concomitant]
  4. BEVACIZUMAB [Concomitant]
  5. DAPSONE [Concomitant]
  6. RISPERDAL [Concomitant]
  7. DOCUSATE [Concomitant]
  8. SENNA [Concomitant]
  9. DEXAMETHASONE TAB [Concomitant]
  10. FAMOTADINE [Concomitant]
  11. KEPPRA [Concomitant]
  12. IBUPROFEN [Concomitant]

REACTIONS (5)
  - ANAEMIA [None]
  - CONDITION AGGRAVATED [None]
  - LEUKOPENIA [None]
  - NEUTROPENIA [None]
  - THROMBOCYTOPENIA [None]
